FAERS Safety Report 22616101 (Version 1)
Quarter: 2023Q2

REPORT INFORMATION
  Report Type: Spontaneous
  Country: PT (occurrence: PT)
  Receive Date: 20230619
  Receipt Date: 20230619
  Transmission Date: 20230722
  Serious: Yes (Other)
  Sender: FDA-Public Use
  Company Number: PT-Calliditas-2023CAL00539

PATIENT
  Age: 45 Year
  Sex: Male
  Weight: 150.5 kg

DRUGS (2)
  1. BUDESONIDE [Suspect]
     Active Substance: BUDESONIDE
     Indication: Asthma
     Dosage: 200 UG/DAY
     Route: 055
     Dates: start: 2021
  2. COBICISTAT [Suspect]
     Active Substance: COBICISTAT
     Indication: HIV infection
     Dates: start: 2019

REACTIONS (1)
  - Cushing^s syndrome [Recovering/Resolving]
